FAERS Safety Report 9137715 (Version 1)
Quarter: 2013Q1

REPORT INFORMATION
  Report Type: Spontaneous
  Country: US (occurrence: US)
  Receive Date: 20130304
  Receipt Date: 20130304
  Transmission Date: 20140127
  Serious: No
  Sender: FDA-Public Use
  Company Number: US-ENDO PHARMACEUTICALS INC.-PERC20120103

PATIENT
  Sex: Male

DRUGS (2)
  1. PERCOCET-5 [Suspect]
     Indication: BACK PAIN
     Dosage: 35/2275 MG
     Route: 048
     Dates: end: 201108
  2. PERCOCET-5 [Suspect]
     Indication: ARTHRALGIA

REACTIONS (1)
  - Haematuria [Unknown]
